FAERS Safety Report 7712589-5 (Version None)
Quarter: 2011Q3

REPORT INFORMATION
  Report Type: 
  Country: None (occurrence: None)
  Receive Date: 20110823
  Receipt Date: 20110811
  Transmission Date: 20111222
  Serious: Yes (Other)
  Sender: FDA-Public Use
  Company Number: TPA2011A04853

PATIENT
  Age: 80 Year
  Sex: Male
  Weight: 90.7194 kg

DRUGS (8)
  1. NIFEDIPINE [Concomitant]
  2. DIOVAN HCT [Concomitant]
  3. METOPROLOL TARTRATE [Concomitant]
  4. AMARYL [Concomitant]
  5. NEPHROCAPS (ASCORBIC ACID, PYRIDOXINE HYDROCHLORIDE, BIOTIN, FOLIC ACI [Concomitant]
  6. ULORIC [Suspect]
     Indication: GOUT
     Dosage: 40 MG, 1 IN 1 D, PER ORAL
     Route: 048
     Dates: start: 20100601
  7. DEMADEX [Concomitant]
  8. ASPIRIN [Concomitant]

REACTIONS (4)
  - HEPATIC NEOPLASM MALIGNANT [None]
  - CONDITION AGGRAVATED [None]
  - NUCLEAR MAGNETIC RESONANCE IMAGING ABNORMAL [None]
  - SCAR [None]
